FAERS Safety Report 10948118 (Version 1)
Quarter: 2015Q1

REPORT INFORMATION
  Report Type: Spontaneous
  Country: US (occurrence: None)
  Receive Date: 20150320
  Receipt Date: 20150320
  Transmission Date: 20150721
  Serious: Yes (Other)
  Sender: FDA-Public Use
  Company Number: ABR_02108_2015

PATIENT
  Age: 73 Year
  Sex: Male

DRUGS (4)
  1. BUMETANIDE. [Concomitant]
     Active Substance: BUMETANIDE
  2. ELIQUIS [Concomitant]
     Active Substance: APIXABAN
  3. EDARBI [Suspect]
     Active Substance: AZILSARTAN KAMEDOXOMIL
     Indication: BLOOD PRESSURE
     Route: 048
     Dates: start: 201502
  4. TERAZOSIN [Concomitant]
     Active Substance: TERAZOSIN\TERAZOSIN HYDROCHLORIDE

REACTIONS (2)
  - Confusional state [None]
  - Muscle spasms [None]

NARRATIVE: CASE EVENT DATE: 201502
